FAERS Safety Report 5887130-2 (Version None)
Quarter: 2008Q3

REPORT INFORMATION
  Report Type: 
  Country: None (occurrence: None)
  Receive Date: 20080915
  Receipt Date: 20080903
  Transmission Date: 20090109
  Serious: Yes (Hospitalization, Other)
  Sender: FDA-Public Use
  Company Number: 230340J08GBR

PATIENT
  Age: 39 Year
  Sex: Female

DRUGS (2)
  1. REBIF [Suspect]
     Dosage: 22 MCG, 3 IN 1 WEEKS, SUBCUTANOUS; 22 MCG, 3 IN 1 WEEKS, SUBCUTANEOUS
     Route: 058
     Dates: start: 20041031
  2. REBIF [Suspect]
     Dosage: 22 MCG, 3 IN 1 WEEKS, SUBCUTANOUS; 22 MCG, 3 IN 1 WEEKS, SUBCUTANEOUS
     Route: 058
     Dates: start: 20080501

REACTIONS (11)
  - CARBUNCLE [None]
  - CHEST PAIN [None]
  - COUGH [None]
  - FURUNCLE [None]
  - IMMUNE SYSTEM DISORDER [None]
  - INFECTION [None]
  - LYMPHOCYTE COUNT DECREASED [None]
  - NEUTROPHIL COUNT DECREASED [None]
  - OPTIC NEURITIS [None]
  - STAPHYLOCOCCAL INFECTION [None]
  - WHITE BLOOD CELL COUNT DECREASED [None]
